FAERS Safety Report 6650401-6 (Version None)
Quarter: 2010Q1

REPORT INFORMATION
  Report Type: 
  Country: None (occurrence: None)
  Receive Date: 20100322
  Receipt Date: 20100315
  Transmission Date: 20100710
  Serious: Yes (Hospitalization)
  Sender: FDA-Public Use
  Company Number: 530272

PATIENT
  Sex: Female
  Weight: 58 kg

DRUGS (3)
  1. EPIRUBICIN HYDROCHLORIDE [Suspect]
     Indication: BREAST CANCER
     Dosage: 4TH AND FINAL SCHEDULED CYCLE. THREE PREVIOUS CYCLES ADMINISTERED. (UNKNOWN), INTRAVENOUS
     Route: 042
     Dates: start: 20100212, end: 20100212
  2. FLUOROURACIL [Suspect]
     Indication: BREAST CANCER
     Dosage: 500 MG/M2, ONCE, INTRAVENOUS
     Route: 042
     Dates: start: 20100212, end: 20100212
  3. CYCLOPHOSPHAMIDE [Suspect]
     Indication: BREAST CANCER
     Dosage: 4TH AND FINAL SCHEDULED CYCLE. THREE PREVIOUS CYCLES ADMINISTERED. (UNKNOWN), INTRAVENOUS
     Route: 042
     Dates: start: 20100212, end: 20100212

REACTIONS (2)
  - CEREBELLAR SYNDROME [None]
  - PARANEOPLASTIC SYNDROME [None]
